FAERS Safety Report 11177644 (Version 1)
Quarter: 2015Q2

REPORT INFORMATION
  Report Type: Spontaneous
  Country: US (occurrence: None)
  Receive Date: 20150608
  Receipt Date: 20150608
  Transmission Date: 20150821
  Serious: Yes (Other)
  Sender: FDA-Public Use
  Company Number: None

PATIENT
  Age: 21 Year
  Sex: Female
  Weight: 99.79 kg

DRUGS (12)
  1. METOPROLOL [Concomitant]
     Active Substance: METOPROLOL
  2. EZETIMIBE. [Concomitant]
     Active Substance: EZETIMIBE
  3. HYDROCOD/ACETA [Concomitant]
  4. MULTIVITAMINS [Concomitant]
     Active Substance: VITAMINS
  5. TRAMADOL [Concomitant]
     Active Substance: TRAMADOL
  6. LUPRON DEPOT [Suspect]
     Active Substance: LEUPROLIDE ACETATE
     Indication: ENDOMETRIOSIS
     Dosage: ONE SHOT FOR 6 MONTHS, EVERY 6 MONTHS, INJECTION IN ARM
  7. METFORMIN [Concomitant]
     Active Substance: METFORMIN HYDROCHLORIDE
  8. PRAVASTATIN [Concomitant]
     Active Substance: PRAVASTATIN\PRAVASTATIN SODIUM
  9. VENLAFAXINE [Concomitant]
     Active Substance: VENLAFAXINE HYDROCHLORIDE
  10. TEMAZEPAM. [Concomitant]
     Active Substance: TEMAZEPAM
  11. RANITIDINE [Concomitant]
     Active Substance: RANITIDINE\RANITIDINE HYDROCHLORIDE
  12. LUPRON DEPOT [Suspect]
     Active Substance: LEUPROLIDE ACETATE
     Indication: PAIN
     Dosage: ONE SHOT FOR 6 MONTHS, EVERY 6 MONTHS, INJECTION IN ARM

REACTIONS (8)
  - Endometriosis [None]
  - Insomnia [None]
  - Tachycardia [None]
  - Disease progression [None]
  - Weight increased [None]
  - Pain [None]
  - Adverse drug reaction [None]
  - Drug ineffective [None]

NARRATIVE: CASE EVENT DATE: 20131025
